FAERS Safety Report 9169409 (Version 1)
Quarter: 2013Q1

REPORT INFORMATION
  Report Type: Spontaneous
  Country: CH (occurrence: CH)
  Receive Date: 20130318
  Receipt Date: 20130318
  Transmission Date: 20140127
  Serious: Yes (Life-Threatening, Hospitalization)
  Sender: FDA-Public Use
  Company Number: CH-TEVA-390523ISR

PATIENT
  Age: 53 Year
  Sex: Female

DRUGS (9)
  1. IRFEN [Suspect]
     Indication: CERVICOBRACHIAL SYNDROME
     Dosage: 1800 MILLIGRAM DAILY;
     Route: 048
     Dates: end: 20130203
  2. IRFEN [Suspect]
     Dosage: DOSING SCHEME UNCLEAR, UP TO 7 TABLETS PER DAY, START DATE UNKNOWN
     Route: 048
     Dates: end: 20130203
  3. SURMONTIL [Suspect]
     Dosage: 75 MILLIGRAM DAILY; START DATE UNKNOWN
     Route: 048
     Dates: end: 20130203
  4. CIPRALEX [Suspect]
     Dosage: 10 MILLIGRAM DAILY; START DATE UNKNOWN
     Route: 048
     Dates: end: 20130203
  5. METHADON STREULI [Suspect]
     Indication: CERVICOBRACHIAL SYNDROME
     Dosage: 80 MILLIGRAM DAILY; START DATE UNKNOWN
     Route: 048
     Dates: end: 20130203
  6. LYRICA [Suspect]
     Dosage: 300 MILLIGRAM DAILY; START DATE UNKNOWN
     Route: 048
     Dates: end: 20130203
  7. ASPIRIN CARDIO [Concomitant]
     Dosage: 100 MILLIGRAM DAILY;
     Route: 048
  8. TRIATEC COMP [Concomitant]
     Dosage: 1 DOSAGE FORMS DAILY; 1 DOSAGE FORM = 25 MG HYDROCHLOROTHIAZIDE/ 5 MG RAMIPRIL
     Route: 048
     Dates: end: 20130203
  9. PANTOZOL [Concomitant]
     Dosage: 40 MILLIGRAM DAILY; LONG-TERM THERAPY
     Route: 048

REACTIONS (2)
  - Hepatic failure [Recovering/Resolving]
  - Overdose [Unknown]
